FAERS Safety Report 22131811 (Version 6)
Quarter: 2024Q4

REPORT INFORMATION
  Report Type: Spontaneous
  Country: US (occurrence: US)
  Receive Date: 20230323
  Receipt Date: 20241021
  Transmission Date: 20250115
  Serious: Yes (Other)
  Sender: PFIZER
  Company Number: US-PFIZER INC-PV202300054827

PATIENT
  Age: 73 Year
  Sex: Female
  Weight: 47.619 kg

DRUGS (1)
  1. XELJANZ [Suspect]
     Active Substance: TOFACITINIB CITRATE
     Indication: Rheumatoid arthritis
     Dosage: 5 MG, 1X/DAY
     Route: 048

REACTIONS (7)
  - Chronic kidney disease [Unknown]
  - Hypertension [Unknown]
  - Pain in extremity [Unknown]
  - Burning sensation [Unknown]
  - Limb discomfort [Unknown]
  - Pain in extremity [Unknown]
  - Paraesthesia [Unknown]
